FAERS Safety Report 10286766 (Version 1)
Quarter: 2014Q3

REPORT INFORMATION
  Report Type: Spontaneous
  Country: FI (occurrence: FI)
  Receive Date: 20140709
  Receipt Date: 20140709
  Transmission Date: 20150326
  Serious: Yes (Hospitalization)
  Sender: FDA-Public Use
  Company Number: FI-GE HEALTHCARE MEDICAL DIAGNOSTICS-OMPQ-PR-1407S-0709

PATIENT
  Age: 59 Year
  Sex: Female

DRUGS (4)
  1. PAMOL [Concomitant]
     Active Substance: ACETAMINOPHEN
     Route: 048
  2. OMNIPAQUE [Suspect]
     Active Substance: IOHEXOL
     Indication: PRODUCT USED FOR UNKNOWN INDICATION
     Route: 042
     Dates: start: 20140625, end: 20140625
  3. OMNIPAQUE [Suspect]
     Active Substance: IOHEXOL
     Indication: DIAGNOSTIC PROCEDURE
  4. KLEXANE [Concomitant]
     Active Substance: ENOXAPARIN
     Dosage: 40 MG/DAY

REACTIONS (4)
  - Dyspnoea [Unknown]
  - Pruritus generalised [Unknown]
  - Oedema [Unknown]
  - Asthenia [Unknown]

NARRATIVE: CASE EVENT DATE: 20140625
